FAERS Safety Report 22311281 (Version 5)
Quarter: 2024Q4

REPORT INFORMATION
  Report Type: Spontaneous
  Country: US (occurrence: US)
  Receive Date: 20230511
  Receipt Date: 20241001
  Transmission Date: 20250115
  Serious: Yes (Death, Other)
  Sender: PFIZER
  Company Number: US-PFIZER INC-PV202300083900

PATIENT
  Age: 61 Year
  Sex: Female
  Weight: 117.91 kg

DRUGS (2)
  1. LORBRENA [Suspect]
     Active Substance: LORLATINIB
     Indication: Anaplastic lymphoma kinase gene mutation
     Dosage: 100 MG, 1X/DAY
     Dates: start: 2022
  2. LORBRENA [Suspect]
     Active Substance: LORLATINIB
     Indication: Lung neoplasm malignant
     Dosage: 100 MG TAKE 1 TABLET BY MOUTH ONCE DAILY
     Route: 048

REACTIONS (4)
  - Death [Fatal]
  - Gait inability [Unknown]
  - Brain fog [Unknown]
  - Neoplasm progression [Unknown]

NARRATIVE: CASE EVENT DATE: 20240923
